FAERS Safety Report 20458907 (Version 1)
Quarter: 2022Q1

REPORT INFORMATION
  Report Type: Spontaneous
  Country: US (occurrence: US)
  Receive Date: 20220211
  Receipt Date: 20220211
  Transmission Date: 20220424
  Serious: Yes (Other)
  Sender: FDA-Public Use
  Company Number: US-TERSERA THERAPEUTICS LLC-2022TRS000474

PATIENT

DRUGS (1)
  1. PRIALT [Suspect]
     Active Substance: ZICONOTIDE ACETATE
     Indication: Spinal pain
     Dosage: 8.962 MCG, QD (24 HOURS 20 ML REFILL)
     Route: 037
     Dates: start: 2012

REACTIONS (1)
  - Spinal cord disorder [Not Recovered/Not Resolved]
